FAERS Safety Report 9013951 (Version 1)
Quarter: 2013Q1

REPORT INFORMATION
  Report Type: Spontaneous
  Country: US (occurrence: None)
  Receive Date: 20130109
  Receipt Date: 20130109
  Transmission Date: 20140127
  Serious: Yes (Hospitalization)
  Sender: FDA-Public Use
  Company Number: None

PATIENT
  Age: 55 Year
  Sex: Female
  Weight: 163.3 kg

DRUGS (1)
  1. CRESTOR, 5 MG, A.Z. [Suspect]
     Indication: BLOOD TRIGLYCERIDES INCREASED
     Route: 048
     Dates: start: 20040101, end: 20121101

REACTIONS (16)
  - Fatigue [None]
  - Asthenia [None]
  - Dyspnoea [None]
  - Movement disorder [None]
  - Bladder pain [None]
  - Back pain [None]
  - Urinary incontinence [None]
  - Decreased appetite [None]
  - Feeling abnormal [None]
  - Memory impairment [None]
  - Eye disorder [None]
  - Chest pain [None]
  - Hepatic function abnormal [None]
  - Tendon rupture [None]
  - Blood glucose increased [None]
  - Myalgia [None]
